FAERS Safety Report 4509122-8 (Version None)
Quarter: 2004Q4

REPORT INFORMATION
  Report Type: 
  Country: None (occurrence: None)
  Receive Date: 20041025
  Receipt Date: 20040209
  Transmission Date: 20050328
  Serious: Yes (Other)
  Sender: FDA-Public Use
  Company Number: NSADSS2003021730

PATIENT
  Age: 54 Year
  Sex: Female
  Weight: 89.8122 kg

DRUGS (21)
  1. REMICADE [Suspect]
     Indication: RHEUMATOID ARTHRITIS
     Dosage: 300 MG, 1 IN 8 WEEK, INTRAVENOUS DRIP
     Route: 041
     Dates: start: 20010521, end: 20010521
  2. REMICADE [Suspect]
     Dosage: SEE IMAGE
  3. REMICADE [Suspect]
     Dosage: SEE IMAGE
  4. REMICADE [Suspect]
     Dosage: SEE IMAGE
  5. REMICADE [Suspect]
     Dosage: SEE IMAGE
  6. REMICADE [Suspect]
     Dosage: SEE IMAGE
  7. REMICADE [Suspect]
     Dosage: SEE IMAGE
  8. REMICADE [Suspect]
     Dosage: SEE IMAGE
  9. REMICADE [Suspect]
     Dosage: SEE IMAGE
  10. REMICADE [Suspect]
     Dosage: SEE IMAGE
  11. REMICADE [Suspect]
     Dosage: SEE IMAGE
  12. REMICADE [Suspect]
     Dosage: SEE IMAGE
  13. REMICADE [Suspect]
     Dosage: SEE IMAGE
  14. REMICADE [Suspect]
     Dosage: SEE IMAGE
  15. METHOTREXATE [Concomitant]
  16. NSAID UNSPEC (NSAID'S) [Concomitant]
  17. PLAQUENIL (HYDROCHLOROTHIAZIDE PHOSPHATE) [Concomitant]
  18. METOPROLOL [Concomitant]
  19. CELEBREX [Concomitant]
  20. HYDROCHLOROQUIN (HYDROCHLOROQUINE) [Concomitant]
  21. PREMARIN [Concomitant]

REACTIONS (2)
  - CELLULITIS [None]
  - FALL [None]
